FAERS Safety Report 10235289 (Version 1)
Quarter: 2014Q1

REPORT INFORMATION
  Report Type: Spontaneous
  Country: US (occurrence: None)
  Receive Date: 20140306
  Receipt Date: 20140306
  Transmission Date: 20141002
  Serious: Yes (Hospitalization)
  Sender: FDA-Public Use
  Company Number: 163-21880-13054143

PATIENT
  Age: 75 Year
  Sex: Male

DRUGS (11)
  1. REVLIMID [Suspect]
     Indication: PLASMA CELL MYELOMA
     Route: 048
     Dates: start: 20130111, end: 20130521
  2. DEXAMETHASONE(DEXAMETHASONE) [Concomitant]
  3. DILTIAZEM HCL (DILTIAZEM) [Concomitant]
  4. DEXAMETHASONE(DEXAMETHASONE) [Concomitant]
  5. DILTIAZEM HCL (DILTIAZEM HYDROCHLORIDE) [Concomitant]
  6. MIV(MIV)(UKNOWN) [Concomitant]
  7. OXYCONTIN(OXYCODONE HYDROCHLORIDE) [Concomitant]
  8. PRILOSECT(OMEPRAZOLE) [Concomitant]
  9. TYLENOL(PARACETAMOL) [Concomitant]
  10. COUMADIN (WARFARIN SODIUM) [Concomitant]
  11. ASA(ACETYLSALICYLIC ACID) [Concomitant]

REACTIONS (1)
  - Confusional state [None]
